FAERS Safety Report 17611465 (Version 2)
Quarter: 2020Q2

REPORT INFORMATION
  Report Type: Spontaneous
  Country: US (occurrence: US)
  Receive Date: 20200401
  Receipt Date: 20200420
  Transmission Date: 20200713
  Serious: No
  Sender: FDA-Public Use
  Company Number: US-009507513-2003USA011169

PATIENT
  Age: 51 Year
  Sex: Male

DRUGS (2)
  1. ASMANEX [Suspect]
     Active Substance: MOMETASONE FUROATE
     Indication: ASTHMA
     Dosage: UNK
     Route: 055
     Dates: start: 201911
  2. PROVENTIL [Concomitant]
     Active Substance: ALBUTEROL
     Dosage: TWICE A WEEK

REACTIONS (5)
  - Dyspnoea exertional [Not Recovered/Not Resolved]
  - Product container seal issue [Unknown]
  - Poor quality device used [Unknown]
  - Device difficult to use [Unknown]
  - Product leakage [Unknown]

NARRATIVE: CASE EVENT DATE: 201911
